FAERS Safety Report 18548755 (Version 2)
Quarter: 2021Q1

REPORT INFORMATION
  Report Type: Spontaneous
  Country: DE (occurrence: DE)
  Receive Date: 20201126
  Receipt Date: 20210208
  Transmission Date: 20210419
  Serious: Yes (Hospitalization, Other)
  Sender: FDA-Public Use
  Company Number: DE-AUROBINDO-AUR-APL-2020-056795

PATIENT
  Age: 57 Year
  Sex: Male
  Weight: 83.5 kg

DRUGS (5)
  1. EZETIMIBE. [Suspect]
     Active Substance: EZETIMIBE
     Indication: DYSLIPIDAEMIA
  2. EZETIMIBE. [Suspect]
     Active Substance: EZETIMIBE
     Indication: HYPERLIPIDAEMIA
     Dosage: UNK
     Route: 065
     Dates: start: 20200617
  3. ACETYLSALICYLIC ACID TABLET [Suspect]
     Active Substance: ASPIRIN
     Indication: CARDIOVASCULAR DISORDER
     Dosage: UNK
     Route: 065
     Dates: start: 20150414
  4. ATORVASTATIN [Suspect]
     Active Substance: ATORVASTATIN
     Indication: HYPERLIPIDAEMIA
     Dosage: UNK
     Route: 065
     Dates: start: 20200617
  5. ATORVASTATIN [Suspect]
     Active Substance: ATORVASTATIN
     Indication: DYSLIPIDAEMIA

REACTIONS (2)
  - Hepatitis E [Recovered/Resolved]
  - Transaminases increased [Recovering/Resolving]

NARRATIVE: CASE EVENT DATE: 20201030
